FAERS Safety Report 9998195 (Version 5)
Quarter: 2014Q2

REPORT INFORMATION
  Report Type: Spontaneous
  Country: US (occurrence: US)
  Receive Date: 20140311
  Receipt Date: 20140530
  Transmission Date: 20141212
  Serious: Yes (Hospitalization, Other)
  Sender: FDA-Public Use
  Company Number: US-BAXTER-2014BAX011093

PATIENT
  Age: 54 Year
  Sex: Male
  Weight: 98.18 kg

DRUGS (3)
  1. DIANEAL LOW CALCIUM [Suspect]
     Indication: RENAL FAILURE CHRONIC
     Route: 033
  2. DIANEAL PD2 [Suspect]
     Indication: PERITONEAL DIALYSIS
     Route: 033
     Dates: start: 2009
  3. DIANEAL PD2 [Suspect]
     Indication: RENAL FAILURE CHRONIC
     Route: 033
     Dates: start: 2009

REACTIONS (6)
  - Mental impairment [Not Recovered/Not Resolved]
  - Fall [Recovering/Resolving]
  - Hip fracture [Unknown]
  - Peritonitis [Recovered/Resolved]
  - Hypotension [Unknown]
  - Peritoneal dialysis complication [Unknown]
